FAERS Safety Report 6735618-4 (Version None)
Quarter: 2010Q2

REPORT INFORMATION
  Report Type: 
  Country: None (occurrence: None)
  Receive Date: 20100520
  Receipt Date: 20100520
  Transmission Date: 20101027
  Serious: No
  Sender: FDA-Public Use
  Company Number: None

PATIENT
  Age: 21 Year
  Sex: Female
  Weight: 72.5755 kg

DRUGS (2)
  1. METRONIDAZOLE [Suspect]
     Indication: CLOSTRIDIAL INFECTION
     Dosage: 500 MG 3 TIMES DAILY PO
     Route: 048
     Dates: start: 20100309, end: 20100319
  2. METRONIDAZOLE [Suspect]
     Indication: INFECTION
     Dosage: 500 MG 3 TIMES DAILY PO
     Route: 048
     Dates: start: 20100323, end: 20100402

REACTIONS (12)
  - CHROMATURIA [None]
  - DEPRESSION [None]
  - DRUG INEFFECTIVE [None]
  - DYSGEUSIA [None]
  - FUNGAL INFECTION [None]
  - HEADACHE [None]
  - LETHARGY [None]
  - MENTAL DISORDER [None]
  - NAUSEA [None]
  - PRODUCT QUALITY ISSUE [None]
  - TONGUE DISORDER [None]
  - WEIGHT DECREASED [None]
